FAERS Safety Report 8422431-5 (Version None)
Quarter: 2012Q2

REPORT INFORMATION
  Report Type: 
  Country: None (occurrence: None)
  Receive Date: 20120608
  Receipt Date: 20120601
  Transmission Date: 20120825
  Serious: Yes (Other)
  Sender: FDA-Public Use
  Company Number: FR-PFIZER INC-2012132178

PATIENT
  Sex: Female

DRUGS (1)
  1. TRIPHASIL-21 [Suspect]
     Dosage: 1 DF, UNK
     Dates: start: 20110801, end: 20120530

REACTIONS (2)
  - NAUSEA [None]
  - ANAEMIA [None]
